FAERS Safety Report 18841346 (Version 1)
Quarter: 2021Q1

REPORT INFORMATION
  Report Type: Other
  Country: US (occurrence: US)
  Receive Date: 20210204
  Receipt Date: 20210204
  Transmission Date: 20210419
  Serious: Yes (Other)
  Sender: FDA-Public Use
  Company Number: US-ROCHE-2762211

PATIENT

DRUGS (3)
  1. CAPECITABINE. [Suspect]
     Active Substance: CAPECITABINE
     Indication: GASTROOESOPHAGEAL CANCER
     Route: 065
  2. CADONILIMAB. [Suspect]
     Active Substance: CADONILIMAB
     Indication: GASTROOESOPHAGEAL CANCER
     Dosage: 4, 6 AND 10 MG/KG
     Route: 065
  3. OXALIPLATIN. [Suspect]
     Active Substance: OXALIPLATIN
     Indication: GASTROOESOPHAGEAL CANCER
     Route: 065

REACTIONS (8)
  - Infusion related reaction [Unknown]
  - Pneumonitis [Unknown]
  - Anaemia [Unknown]
  - Neutrophil count decreased [Unknown]
  - Platelet count decreased [Unknown]
  - White blood cell count decreased [Unknown]
  - Hepatitis [Unknown]
  - Hyponatraemia [Unknown]
